FAERS Safety Report 8797275 (Version 1)
Quarter: 2012Q4

REPORT INFORMATION
  Report Type: 
  Country: CA (occurrence: CA)
  Receive Date: 20120919
  Receipt Date: 20120919
  Transmission Date: 20130627
  Serious: Yes (Death)
  Sender: FDA-Public Use
  Company Number: CA-ROCHE-1128772

PATIENT

DRUGS (3)
  1. PEGASYS [Suspect]
     Indication: PRODUCT USED FOR UNKNOWN INDICATION
     Route: 065
  2. EPREX [Suspect]
     Indication: PRODUCT USED FOR UNKNOWN INDICATION
     Dosage: sterile solution
     Route: 065
  3. PEGETRON [Suspect]
     Indication: PRODUCT USED FOR UNKNOWN INDICATION
     Route: 065

REACTIONS (4)
  - Mania [Fatal]
  - Myocardial infarction [Fatal]
  - Pneumonia [Fatal]
  - Alopecia [Unknown]
